FAERS Safety Report 24224613 (Version 2)
Quarter: 2024Q3

REPORT INFORMATION
  Report Type: Spontaneous
  Country: US (occurrence: US)
  Receive Date: 20240819
  Receipt Date: 20240820
  Transmission Date: 20241016
  Serious: No
  Sender: PURDUE
  Company Number: US-PURDUE PHARMA-USA-2024-0311412

PATIENT
  Age: 37 Year
  Sex: Male

DRUGS (2)
  1. OXYCODONE HYDROCHLORIDE [Suspect]
     Active Substance: OXYCODONE HYDROCHLORIDE
     Indication: Product used for unknown indication
     Dosage: UNKNOWN
     Route: 065
  2. FENTANYL [Suspect]
     Active Substance: FENTANYL\FENTANYL CITRATE
     Indication: Product used for unknown indication
     Dosage: UNKNOWN
     Route: 065

REACTIONS (3)
  - Homicide [Unknown]
  - Drug diversion [Unknown]
  - Product counterfeit [Unknown]
